FAERS Safety Report 24324337 (Version 1)
Quarter: 2024Q3

REPORT INFORMATION
  Report Type: Spontaneous
  Country: US (occurrence: US)
  Receive Date: 20240916
  Receipt Date: 20240916
  Transmission Date: 20241016
  Serious: No
  Sender: SANOFI AVENTIS
  Company Number: US-SA-2024SA266345

PATIENT
  Sex: Male

DRUGS (2)
  1. REZUROCK [Suspect]
     Active Substance: BELUMOSUDIL
     Dosage: 200MG
  2. JAKAFI [Suspect]
     Active Substance: RUXOLITINIB

REACTIONS (1)
  - Drug ineffective [Unknown]
